FAERS Safety Report 21335995 (Version 1)
Quarter: 2022Q3

REPORT INFORMATION
  Report Type: Spontaneous
  Country: DK (occurrence: DK)
  Receive Date: 20220915
  Receipt Date: 20220915
  Transmission Date: 20221027
  Serious: Yes (Hospitalization)
  Sender: FDA-Public Use
  Company Number: None

PATIENT
  Age: 49 Year
  Sex: Female

DRUGS (1)
  1. OCREVUS [Suspect]
     Active Substance: OCRELIZUMAB
     Indication: Multiple sclerosis
     Dosage: LATEST DOSE GIVEN ON 25MAY2020. STRENGTH: 300 MG
     Route: 065
     Dates: start: 2019

REACTIONS (6)
  - Viral infection [Recovered/Resolved]
  - Pyrexia [Recovered/Resolved]
  - Musculoskeletal stiffness [Recovered/Resolved]
  - Meningitis [Unknown]
  - Headache [Recovering/Resolving]
  - Brain abscess [Recovering/Resolving]

NARRATIVE: CASE EVENT DATE: 20200101
